FAERS Safety Report 4386271-9 (Version None)
Quarter: 2004Q2

REPORT INFORMATION
  Report Type: 
  Country: None (occurrence: None)
  Receive Date: 20040623
  Receipt Date: 20040611
  Transmission Date: 20050107
  Serious: Yes (Other)
  Sender: FDA-Public Use
  Company Number: GB-JNJFOC-20040603060

PATIENT
  Age: 13 Year
  Sex: Male

DRUGS (1)
  1. CONCERTA [Suspect]
     Dosage: 54 MG, 1 IN 1 DAY, ORAL
     Route: 048
     Dates: start: 20021031

REACTIONS (2)
  - MEDICATION ERROR [None]
  - OVERDOSE [None]
